FAERS Safety Report 11647402 (Version 1)
Quarter: 2015Q4

REPORT INFORMATION
  Report Type: Spontaneous
  Country: US (occurrence: None)
  Receive Date: 20151019
  Receipt Date: 20151019
  Transmission Date: 20160304
  Serious: Yes (Hospitalization)
  Sender: FDA-Public Use
  Company Number: 2015PL000089

PATIENT
  Sex: Female

DRUGS (1)
  1. ALLOPURINOL (ALLOPURINOL) TABLET [Suspect]
     Active Substance: ALLOPURINOL
     Indication: GOUT
     Dates: start: 201207

REACTIONS (7)
  - Stevens-Johnson syndrome [None]
  - Renal failure [None]
  - Skin lesion [None]
  - Lip swelling [None]
  - Pruritus [None]
  - Chills [None]
  - Oral disorder [None]

NARRATIVE: CASE EVENT DATE: 20120703
